FAERS Safety Report 4337137-1 (Version None)
Quarter: 2004Q2

REPORT INFORMATION
  Report Type: 
  Country: None (occurrence: None)
  Receive Date: 20040408
  Receipt Date: 20040325
  Transmission Date: 20050107
  Serious: Yes (Life-Threatening)
  Sender: FDA-Public Use
  Company Number: A06200400102

PATIENT
  Sex: Female

DRUGS (1)
  1. FASTURTEC - (RASBURICASE) - SOLUTION - 7.5 MG [Suspect]
     Dosage: INTRAVENOUS NOS
     Route: 042

REACTIONS (3)
  - HYPOTENSION [None]
  - INFUSION RELATED REACTION [None]
  - LOSS OF CONSCIOUSNESS [None]
